FAERS Safety Report 6877004-2 (Version None)
Quarter: 2010Q3

REPORT INFORMATION
  Report Type: 
  Country: None (occurrence: None)
  Receive Date: 20100727
  Receipt Date: 20100720
  Transmission Date: 20110219
  Serious: Yes (Life-Threatening)
  Sender: FDA-Public Use
  Company Number: AU-ASTRAZENECA-2010SE33995

PATIENT
  Age: 79 Year
  Sex: Female

DRUGS (11)
  1. PROPOFOL [Suspect]
  2. FENTANYL [Suspect]
  3. MIDAZOLAM HCL [Suspect]
  4. SEVOFLURANE [Suspect]
  5. VECURONIUM BROMIDE [Suspect]
  6. GLICLAZIDE [Concomitant]
  7. INSULIN HUMAN NOS [Concomitant]
  8. ISOSORBIDE DINITRATE [Concomitant]
  9. METFORMIN HYDROCHLORIDE [Concomitant]
  10. RAMIPRIL [Concomitant]
  11. SIMVASTATIN [Concomitant]

REACTIONS (1)
  - TORSADE DE POINTES [None]
